FAERS Safety Report 8423569-9 (Version None)
Quarter: 2012Q2

REPORT INFORMATION
  Report Type: 
  Country: None (occurrence: None)
  Receive Date: 20120608
  Receipt Date: 20120531
  Transmission Date: 20120825
  Serious: Yes (Hospitalization)
  Sender: FDA-Public Use
  Company Number: CA-B.I. PHARMACEUTICALS,INC./RIDGEFIELD-2012-EU-02960GD

PATIENT
  Age: 72 Year
  Sex: Female

DRUGS (2)
  1. HEPARIN [Suspect]
  2. DABIGATRAN [Suspect]
     Dosage: 300 MG
     Route: 048

REACTIONS (7)
  - CHEST PAIN [None]
  - BACK PAIN [None]
  - COAGULOPATHY [None]
  - DYSPNOEA [None]
  - AORTIC INTRAMURAL HAEMATOMA [None]
  - PERICARDIAL EFFUSION [None]
  - CHEST DISCOMFORT [None]
